FAERS Safety Report 21305126 (Version 1)
Quarter: 2022Q3

REPORT INFORMATION
  Report Type: Spontaneous
  Country: US (occurrence: US)
  Receive Date: 20220907
  Receipt Date: 20220907
  Transmission Date: 20221027
  Serious: No
  Sender: FDA-Public Use
  Company Number: US-PERRIGO-22US001152

PATIENT
  Age: 73 Year
  Sex: Female
  Weight: 45.351 kg

DRUGS (2)
  1. MINOXIDIL [Suspect]
     Active Substance: MINOXIDIL
     Indication: Madarosis
     Dosage: SMALL AMOUNT, NIGHTLY
     Route: 061
     Dates: start: 20220119
  2. MINOXIDIL [Concomitant]
     Active Substance: MINOXIDIL
     Indication: Alopecia
     Dosage: SMALL AMOUNT, NIGHTLY
     Route: 061
     Dates: start: 20220119

REACTIONS (3)
  - Product administered at inappropriate site [Unknown]
  - Off label use [Unknown]
  - Wrong technique in product usage process [Unknown]

NARRATIVE: CASE EVENT DATE: 20220119
